FAERS Safety Report 22072015 (Version 1)
Quarter: 2023Q1

REPORT INFORMATION
  Report Type: Spontaneous
  Country: US (occurrence: US)
  Receive Date: 20230308
  Receipt Date: 20230308
  Transmission Date: 20230418
  Serious: Yes (Hospitalization)
  Sender: FDA-Public Use
  Company Number: US-BEH-2023156179

PATIENT
  Sex: Male

DRUGS (1)
  1. PRIVIGEN [Suspect]
     Active Substance: HUMAN IMMUNOGLOBULIN G
     Indication: Joint range of motion decreased
     Dosage: 40 GRAM, QMT
     Route: 042
     Dates: start: 202202

REACTIONS (3)
  - Dyspnoea [Unknown]
  - No adverse event [Unknown]
  - Product use in unapproved indication [Unknown]
